FAERS Safety Report 13200492 (Version 1)
Quarter: 2017Q1

REPORT INFORMATION
  Report Type: Report from Study
  Country: US (occurrence: US)
  Receive Date: 20170208
  Receipt Date: 20170208
  Transmission Date: 20170428
  Serious: No
  Sender: FDA-Public Use
  Company Number: US-AMGEN-USASL2016028526

PATIENT
  Age: 64 Year
  Sex: Female

DRUGS (45)
  1. HERCEPTIN [Suspect]
     Active Substance: TRASTUZUMAB
     Dosage: 155 MG, 1 IN 21 D
     Route: 042
     Dates: start: 20130205, end: 20130205
  2. HERCEPTIN [Suspect]
     Active Substance: TRASTUZUMAB
     Dosage: 160 MG, UNK
     Route: 042
     Dates: start: 20130411, end: 20130411
  3. HERCEPTIN [Suspect]
     Active Substance: TRASTUZUMAB
     Dosage: 460 MG, UNK
     Route: 042
  4. HEPARIN [Concomitant]
     Active Substance: HEPARIN SODIUM
     Dosage: UNK
     Route: 042
     Dates: start: 20130212, end: 20130212
  5. HEPARIN [Concomitant]
     Active Substance: HEPARIN SODIUM
     Dosage: UNK
     Route: 042
     Dates: start: 20130411, end: 20130411
  6. HERCEPTIN [Suspect]
     Active Substance: TRASTUZUMAB
     Dosage: 463 MG, UNK
     Route: 042
     Dates: start: 20130829, end: 20130829
  7. CARBOPLATIN. [Concomitant]
     Active Substance: CARBOPLATIN
     Dosage: 550 MG, UNK
     Route: 042
     Dates: start: 20130221, end: 20130221
  8. CARBOPLATIN. [Concomitant]
     Active Substance: CARBOPLATIN
     Dosage: 550 MG, UNK
     Route: 042
     Dates: start: 20130228, end: 20130228
  9. HEPARIN [Concomitant]
     Active Substance: HEPARIN SODIUM
     Dosage: UNK
     Route: 042
     Dates: start: 20130228, end: 20130228
  10. LEVOTHYROXINE SODIUM. [Concomitant]
     Active Substance: LEVOTHYROXINE SODIUM
     Dosage: 50 MUG, 1 IN 1 D
     Route: 048
  11. HERCEPTIN [Suspect]
     Active Substance: TRASTUZUMAB
     Indication: INFLAMMATORY CARCINOMA OF THE BREAST
     Dosage: 484 MG, UNK
     Route: 042
     Dates: start: 20130808, end: 20130808
  12. HERCEPTIN [Suspect]
     Active Substance: TRASTUZUMAB
     Dosage: 160 MG, UNK
     Route: 042
     Dates: start: 20130212, end: 20130212
  13. HERCEPTIN [Suspect]
     Active Substance: TRASTUZUMAB
     Dosage: 164 MG, UNK
     Route: 042
     Dates: start: 20130418, end: 20130418
  14. HERCEPTIN [Suspect]
     Active Substance: TRASTUZUMAB
     Dosage: 165 MG, UNK
     Route: 042
  15. HERCEPTIN [Suspect]
     Active Substance: TRASTUZUMAB
     Dosage: 463 MG, UNK
     Route: 042
  16. CARBOPLATIN. [Concomitant]
     Active Substance: CARBOPLATIN
     Dosage: 550 MG, UNK
     Route: 042
     Dates: start: 20130205, end: 20130205
  17. CARBOPLATIN. [Concomitant]
     Active Substance: CARBOPLATIN
     Dosage: 550 MG, UNK
     Route: 042
     Dates: start: 20130411, end: 20130411
  18. HYDROCHLOROTHIAZIDE W/LISINOPRIL [Concomitant]
     Active Substance: HYDROCHLOROTHIAZIDE\LISINOPRIL
     Dosage: 50 MUG, 1 IN 1 D
     Route: 048
  19. HERCEPTIN [Suspect]
     Active Substance: TRASTUZUMAB
     Dosage: 160 MG, UNK
     Route: 042
     Dates: start: 20130328, end: 20130328
  20. TETRACYCLIN WITH NYSTATINE [Concomitant]
     Indication: HYPERSENSITIVITY
     Dosage: UNK UNK, AS PER NEED
  21. METHYLPREDNISOLONE SODIUM SUCCINATE. [Concomitant]
     Active Substance: METHYLPREDNISOLONE SODIUM SUCCINATE
     Indication: HYPERSENSITIVITY
     Dosage: 125 MG, AS PER NEED
  22. CARBOPLATIN. [Concomitant]
     Active Substance: CARBOPLATIN
     Dosage: 550 MG, UNK
     Route: 042
     Dates: start: 20130212, end: 20130212
  23. HEPARIN [Concomitant]
     Active Substance: HEPARIN SODIUM
     Dosage: UNK
     Route: 042
     Dates: start: 20130129, end: 20130129
  24. NORMAL SALINE [Concomitant]
     Active Substance: SODIUM CHLORIDE
     Dosage: UNK
     Route: 042
  25. DEXAMETHASONE. [Concomitant]
     Active Substance: DEXAMETHASONE
     Dosage: 4 MG, TAKE 2 PO BIDX3DAYS STARTING DAY BEFORE CHEMO
     Route: 048
  26. HERCEPTIN [Suspect]
     Active Substance: TRASTUZUMAB
     Dosage: 319 MG, 1 IN 21 D
     Route: 042
     Dates: start: 20130129, end: 20130129
  27. HERCEPTIN [Suspect]
     Active Substance: TRASTUZUMAB
     Dosage: 375 MG, UNK
     Route: 042
  28. HYDROCORTISONE SODIUM SUCCINATE [Concomitant]
     Active Substance: HYDROCORTISONE SODIUM SUCCINATE
     Indication: HYPERSENSITIVITY
     Dosage: UNK UNK, AS PER NEED
  29. PROCHLORPERAZINE MALEATE. [Concomitant]
     Active Substance: PROCHLORPERAZINE MALEATE
     Indication: NAUSEA
     Dosage: 10 MG, 1 PO Q6H, PRN
     Route: 048
  30. HERCEPTIN [Suspect]
     Active Substance: TRASTUZUMAB
     Dosage: 128 MG, UNK
     Route: 042
  31. HERCEPTIN [Suspect]
     Active Substance: TRASTUZUMAB
     Dosage: 161 MG, UNK
     Route: 042
  32. DIPHENHYDRAMINE HCL [Concomitant]
     Active Substance: DIPHENHYDRAMINE HYDROCHLORIDE
     Dosage: 25 MG, UNK
     Route: 042
  33. HEPARIN [Concomitant]
     Active Substance: HEPARIN SODIUM
     Dosage: UNK
     Route: 042
     Dates: start: 20130205, end: 20130205
  34. HEPARIN [Concomitant]
     Active Substance: HEPARIN SODIUM
     Dosage: UNK
     Route: 042
     Dates: start: 20130321, end: 20130321
  35. PEGFILGRASTIM [Suspect]
     Active Substance: PEGFILGRASTIM
     Indication: PRODUCT USED FOR UNKNOWN INDICATION
     Dosage: UNK
     Route: 065
  36. HERCEPTIN [Suspect]
     Active Substance: TRASTUZUMAB
     Dosage: 484 MG, UNK
     Route: 042
  37. TAXOTERE [Concomitant]
     Active Substance: DOCETAXEL
     Dosage: UNK, AS DIRECTED
     Route: 042
  38. CARBOPLATIN. [Concomitant]
     Active Substance: CARBOPLATIN
     Dosage: 550 MG, UNK
     Route: 042
     Dates: start: 20130321, end: 20130321
  39. HEPARIN [Concomitant]
     Active Substance: HEPARIN SODIUM
     Dosage: UNK
     Route: 042
     Dates: start: 20130328, end: 20130328
  40. PALONOSETRON [Concomitant]
     Active Substance: PALONOSETRON
     Dosage: 0.25 MG, UNK
     Route: 042
     Dates: start: 20130221, end: 20130221
  41. PROMETHAZINE [Concomitant]
     Active Substance: PROMETHAZINE\PROMETHAZINE HYDROCHLORIDE
     Dosage: UNK
     Route: 061
  42. HERCEPTIN [Suspect]
     Active Substance: TRASTUZUMAB
     Dosage: 161 MG, UNK
     Route: 042
  43. ACETAMINOPHEN. [Concomitant]
     Active Substance: ACETAMINOPHEN
     Dosage: 500 MG (2 DF), UNK
     Route: 048
  44. CARBOPLATIN. [Concomitant]
     Active Substance: CARBOPLATIN
     Dosage: 550 MG, UNK
     Route: 042
     Dates: start: 20130129, end: 20130129
  45. CARBOPLATIN. [Concomitant]
     Active Substance: CARBOPLATIN
     Dosage: 550 MG, UNK
     Route: 042
     Dates: start: 20130328, end: 20130328

REACTIONS (16)
  - Mean cell haemoglobin concentration decreased [Unknown]
  - Application site irritation [Unknown]
  - Mean cell haemoglobin increased [Unknown]
  - Neuropathy peripheral [Unknown]
  - Haematocrit decreased [Unknown]
  - Mean cell volume increased [Unknown]
  - Platelet count decreased [Unknown]
  - Blister [Unknown]
  - Weight decreased [Unknown]
  - White blood cell count decreased [Unknown]
  - Red blood cell count decreased [Unknown]
  - Haemoglobin decreased [Unknown]
  - Lymphocyte count decreased [Unknown]
  - Application site erythema [Unknown]
  - Fatigue [Unknown]
  - Anaemia [Unknown]

NARRATIVE: CASE EVENT DATE: 20130808
